FAERS Safety Report 4730517-1 (Version None)
Quarter: 2005Q3

REPORT INFORMATION
  Report Type: 
  Country: None (occurrence: None)
  Receive Date: 20050725
  Receipt Date: 20050214
  Transmission Date: 20060218
  Serious: No
  Sender: FDA-Public Use
  Company Number: USA050290767

PATIENT
  Age: 24 Year
  Sex: Male
  Weight: 68 kg

DRUGS (1)
  1. STRATTERA [Suspect]
     Dosage: 40 MG DAY
     Dates: start: 20050201

REACTIONS (8)
  - ANOREXIA [None]
  - DRY MOUTH [None]
  - DYSURIA [None]
  - ERECTILE DYSFUNCTION [None]
  - SCROTAL DISORDER [None]
  - SCROTAL IRRITATION [None]
  - SLEEP DISORDER [None]
  - URINARY INCONTINENCE [None]
